FAERS Safety Report 17460300 (Version 2)
Quarter: 2020Q1

REPORT INFORMATION
  Report Type: Spontaneous
  Country: US (occurrence: US)
  Receive Date: 20200226
  Receipt Date: 20200227
  Transmission Date: 20200409
  Serious: No
  Sender: FDA-Public Use
  Company Number: US-PFIZER INC-2020084521

PATIENT
  Age: 71 Year
  Sex: Female
  Weight: 60.77 kg

DRUGS (1)
  1. YUVAFEM [Suspect]
     Active Substance: ESTRADIOL HEMIHYDRATE
     Dosage: 10 UG, UNK

REACTIONS (1)
  - Drug ineffective [Unknown]
